FAERS Safety Report 4498421-4 (Version None)
Quarter: 2004Q4

REPORT INFORMATION
  Report Type: 
  Country: None (occurrence: None)
  Receive Date: 20041105
  Receipt Date: 20041025
  Transmission Date: 20050328
  Serious: Yes (Disabling)
  Sender: FDA-Public Use
  Company Number: 2004083697

PATIENT
  Age: 45 Year
  Sex: Female
  Weight: 63.3 kg

DRUGS (11)
  1. VORICONAZOLE (VORICONAZOLE) [Suspect]
     Indication: BRONCHOPULMONARY ASPERGILLOSIS
     Dosage: 300 MG (150 MG, 2 IN 1 D), ORAL
     Route: 048
     Dates: start: 20020507
  2. PREDNISOLONE [Suspect]
     Indication: ASTHMA
     Dosage: ORAL
     Route: 048
  3. PREDNISOLONE [Suspect]
     Indication: BRONCHOPULMONARY ASPERGILLOSIS
     Dosage: ORAL
     Route: 048
  4. PREDNISOLONE [Suspect]
     Indication: HYPERSENSITIVITY
     Dosage: ORAL
     Route: 048
  5. TEMAZEPAM [Concomitant]
  6. CODEINE (CODEINE) [Concomitant]
  7. TERBUTALINE SULFATE [Concomitant]
  8. COLISTIN SULFATE (COLISTIN SULFATE) [Concomitant]
  9. IPRATROPIUM BROMIDE [Concomitant]
  10. SALMETEROL XINAFOATE (SALMETEROL XINAFOATE) [Concomitant]
  11. THEOPHYLLINE [Concomitant]

REACTIONS (2)
  - CUSHINGOID [None]
  - DRUG INTERACTION [None]
